FAERS Safety Report 18553263 (Version 1)
Quarter: 2020Q4

REPORT INFORMATION
  Report Type: Report from Study
  Country: CA (occurrence: CA)
  Receive Date: 20201127
  Receipt Date: 20201127
  Transmission Date: 20210114
  Serious: Yes (Other)
  Sender: FDA-Public Use
  Company Number: CA-EMD SERONO-9174757

PATIENT
  Age: 40 Year
  Sex: Female

DRUGS (8)
  1. MAVENCLAD [Suspect]
     Active Substance: CLADRIBINE
     Dosage: YEAR TWO WEEK ONE TREATMENT.
     Route: 048
  2. AMITRIPTYLINE [Concomitant]
     Active Substance: AMITRIPTYLINE
     Indication: SENSORY DISTURBANCE
  3. MAVENCLAD [Suspect]
     Active Substance: CLADRIBINE
     Dosage: YEAR ONE WEEK TWO TREATMENT.
     Route: 048
  4. MAVENCLAD [Suspect]
     Active Substance: CLADRIBINE
     Indication: MULTIPLE SCLEROSIS
     Dosage: YEAR ONE WEEK ONE TREATMENT.
     Route: 048
     Dates: start: 20190516
  5. MAVENCLAD [Suspect]
     Active Substance: CLADRIBINE
     Dosage: YEAR TWO WEEK TWO TREATMENT.
     Route: 048
     Dates: end: 20200621
  6. AMITRIPTYLINE [Concomitant]
     Active Substance: AMITRIPTYLINE
     Indication: PAIN
  7. NAPROXEN. [Concomitant]
     Active Substance: NAPROXEN
     Indication: SENSORY DISTURBANCE
  8. NAPROXEN. [Concomitant]
     Active Substance: NAPROXEN
     Indication: PAIN

REACTIONS (5)
  - Mouth ulceration [Unknown]
  - Acne [Unknown]
  - Alopecia [Unknown]
  - Genital abscess [Not Recovered/Not Resolved]
  - Vaginal infection [Unknown]
